FAERS Safety Report 5592642-5 (Version None)
Quarter: 2008Q1

REPORT INFORMATION
  Report Type: 
  Country: None (occurrence: None)
  Receive Date: 20080115
  Receipt Date: 20080108
  Transmission Date: 20080703
  Serious: Yes (Hospitalization)
  Sender: FDA-Public Use
  Company Number: US-BOEHRINGER INGELHEIM PHARMACEUTICALS, INC.-2008-DE-00123GD

PATIENT
  Age: 49 Year
  Sex: Female

DRUGS (5)
  1. MORPHINE [Suspect]
     Indication: COMPLEX REGIONAL PAIN SYNDROME
     Route: 037
  2. MORPHINE [Suspect]
     Dosage: CONTINUOUS INFUSION (PUMP WAS SET TO DELIVER 21 MG/DAY) WITH ADDITIONAL 7 BOLUSES OF 15 MG EACH
     Route: 037
  3. CLONIDINE [Suspect]
     Indication: COMPLEX REGIONAL PAIN SYNDROME
     Route: 037
  4. CLONIDINE [Suspect]
     Dosage: CONTINUOUS INFUSION (PUMP WAS SET TO DELIVER 200 MCG/DAY) WITH ADDITIONAL 7 BOLUSES OF 60 MCG EACH
     Route: 037
  5. BUPIVACAINE [Concomitant]
     Indication: COMPLEX REGIONAL PAIN SYNDROME
     Dosage: CONTINUOUS INFUSION (PUMP WAS SET TO DELIVER 4.2 MG/DAY) WITH ADDITIONAL 7 BOLUSES OF 3 MG EACH
     Route: 037

REACTIONS (7)
  - CHILLS [None]
  - DRUG TOLERANCE [None]
  - DRUG TOXICITY [None]
  - DRUG WITHDRAWAL SYNDROME [None]
  - DYSKINESIA [None]
  - HYPERAESTHESIA [None]
  - MYOCLONUS [None]
